FAERS Safety Report 21461692 (Version 4)
Quarter: 2023Q4

REPORT INFORMATION
  Report Type: Report from Study
  Country: US (occurrence: US)
  Receive Date: 20221015
  Receipt Date: 20231219
  Transmission Date: 20240109
  Serious: Yes (Other)
  Sender: FDA-Public Use
  Company Number: US-ABBVIE-4147080

PATIENT
  Sex: Female

DRUGS (2)
  1. VENCLEXTA [Suspect]
     Active Substance: VENETOCLAX
     Indication: Chronic lymphocytic leukaemia
     Dosage: FORM STRENGTH: 100 MILLIGRAM
     Route: 048
     Dates: start: 202111
  2. VENCLEXTA [Suspect]
     Active Substance: VENETOCLAX
     Indication: Chronic lymphocytic leukaemia
     Route: 048
     Dates: start: 201602

REACTIONS (12)
  - Lung neoplasm malignant [Unknown]
  - Illness [Unknown]
  - COVID-19 [Recovering/Resolving]
  - Respiratory disorder [Not Recovered/Not Resolved]
  - Herpes zoster [Unknown]
  - Blood test abnormal [Unknown]
  - Mobility decreased [Unknown]
  - Emphysema [Unknown]
  - Oxygen saturation decreased [Unknown]
  - Pulmonary mass [Unknown]
  - Unevaluable event [Unknown]
  - Asthenia [Unknown]
